FAERS Safety Report 7952228-1 (Version None)
Quarter: 2011Q4

REPORT INFORMATION
  Report Type: 
  Country: None (occurrence: None)
  Receive Date: 20111201
  Receipt Date: 20111129
  Transmission Date: 20120403
  Serious: Yes (Hospitalization, Other)
  Sender: FDA-Public Use
  Company Number: PL-BRISTOL-MYERS SQUIBB COMPANY-15517055

PATIENT
  Age: 68 Year
  Sex: Female

DRUGS (6)
  1. BLINDED: SAXAGLIPTIN [Suspect]
     Indication: TYPE 2 DIABETES MELLITUS
     Dosage: INTER ON 06DEC2010,RESTART ON 20DEC2010.
     Dates: start: 20100730
  2. INSULIN HUMAN [Suspect]
     Indication: TYPE 2 DIABETES MELLITUS
  3. BLINDED: PLACEBO [Suspect]
     Indication: TYPE 2 DIABETES MELLITUS
  4. ASPIRIN [Concomitant]
     Dosage: 29OCT2010,26JAN2011, 1 DF= } 100MG.
  5. METFORMIN HCL [Suspect]
     Indication: TYPE 2 DIABETES MELLITUS
  6. PERINDOPRIL ERBUMINE [Suspect]

REACTIONS (4)
  - ATRIAL FIBRILLATION [None]
  - CHOLELITHIASIS [None]
  - SUPRAVENTRICULAR TACHYCARDIA [None]
  - PANCREATITIS ACUTE [None]
